FAERS Safety Report 5415382-1 (Version None)
Quarter: 2007Q3

REPORT INFORMATION
  Report Type: 
  Country: None (occurrence: None)
  Receive Date: 20070813
  Receipt Date: 20070813
  Transmission Date: 20080115
  Serious: Yes (Hospitalization, Other)
  Sender: FDA-Public Use
  Company Number: None

PATIENT
  Age: 62 Year
  Sex: Female

DRUGS (1)
  1. VANCOMYCIN [Suspect]
     Dosage: 1750 MG IV Q24H
     Route: 042
     Dates: start: 20070331, end: 20070503

REACTIONS (1)
  - RASH ERYTHEMATOUS [None]
